FAERS Safety Report 15169138 (Version 1)
Quarter: 2018Q3

REPORT INFORMATION
  Report Type: Spontaneous
  Country: US (occurrence: US)
  Receive Date: 20180720
  Receipt Date: 20180720
  Transmission Date: 20181010
  Serious: No
  Sender: FDA-Public Use
  Company Number: US-TEVA-2018-US-928527

PATIENT
  Sex: Female

DRUGS (2)
  1. CLONAZEPAM. [Suspect]
     Active Substance: CLONAZEPAM
     Indication: PANIC DISORDER
  2. CLONAZEPAM. [Suspect]
     Active Substance: CLONAZEPAM

REACTIONS (2)
  - Wrong technique in product usage process [Unknown]
  - Drug effect decreased [Unknown]
